FAERS Safety Report 11063851 (Version 8)
Quarter: 2015Q3

REPORT INFORMATION
  Report Type: Report from Study
  Country: US (occurrence: US)
  Receive Date: 20150424
  Receipt Date: 20150729
  Transmission Date: 20151125
  Serious: Yes (Other)
  Sender: FDA-Public Use
  Company Number: US-SA-2015SA046797

PATIENT
  Age: 59 Year
  Sex: Female

DRUGS (5)
  1. AUBAGIO [Suspect]
     Active Substance: TERIFLUNOMIDE
     Indication: MULTIPLE SCLEROSIS
     Route: 048
  2. AVONEX [Concomitant]
     Active Substance: INTERFERON BETA-1A
     Indication: MULTIPLE SCLEROSIS
     Dates: start: 19980101, end: 20150320
  3. AMPYRA [Concomitant]
     Active Substance: DALFAMPRIDINE
     Dosage: 14 MG
  4. AUBAGIO [Suspect]
     Active Substance: TERIFLUNOMIDE
     Indication: MULTIPLE SCLEROSIS
     Route: 048
     Dates: start: 20150324
  5. AUBAGIO [Suspect]
     Active Substance: TERIFLUNOMIDE
     Indication: MULTIPLE SCLEROSIS
     Route: 048
     Dates: start: 201505

REACTIONS (13)
  - Insomnia [Unknown]
  - Feeling abnormal [Unknown]
  - Gait disturbance [Recovering/Resolving]
  - Wheelchair user [Not Recovered/Not Resolved]
  - Asthenia [Unknown]
  - Walking aid user [Not Recovered/Not Resolved]
  - Nausea [Not Recovered/Not Resolved]
  - Balance disorder [Unknown]
  - Dysstasia [Not Recovered/Not Resolved]
  - Syncope [Recovering/Resolving]
  - Stress [Unknown]
  - Vomiting [Not Recovered/Not Resolved]
  - Pain [Unknown]

NARRATIVE: CASE EVENT DATE: 2015
